FAERS Safety Report 15619576 (Version 1)
Quarter: 2018Q4

REPORT INFORMATION
  Report Type: Spontaneous
  Country: GR (occurrence: GR)
  Receive Date: 20181115
  Receipt Date: 20181115
  Transmission Date: 20190205
  Serious: Yes (Hospitalization, Other)
  Sender: FDA-Public Use
  Company Number: GR-ACCORD-091884

PATIENT
  Age: 56 Year
  Sex: Male

DRUGS (10)
  1. ADALIMUMAB [Suspect]
     Active Substance: ADALIMUMAB
     Indication: ANKYLOSING SPONDYLITIS
  2. CITALOPRAM [Suspect]
     Active Substance: CITALOPRAM HYDROBROMIDE
     Indication: DEPRESSION
     Route: 065
  3. ALPRAZOLAM. [Suspect]
     Active Substance: ALPRAZOLAM
     Indication: DEPRESSION
     Route: 065
  4. FOLIC ACID. [Suspect]
     Active Substance: FOLIC ACID
     Indication: ARTHRALGIA
     Dosage: 5 MG, QW
     Route: 065
  5. METHOTREXATE. [Suspect]
     Active Substance: METHOTREXATE
     Indication: PRODUCT USED FOR UNKNOWN INDICATION
     Dosage: 15 MG, QW
     Route: 065
  6. CAPTOPRIL. [Suspect]
     Active Substance: CAPTOPRIL
     Indication: HYPERTENSION
  7. PREDNISOLONE. [Suspect]
     Active Substance: PREDNISOLONE
     Indication: ARTHRALGIA
     Dosage: 10 MG, QD
     Route: 065
  8. ETANERCEPT [Suspect]
     Active Substance: ETANERCEPT
     Indication: ANKYLOSING SPONDYLITIS
     Dosage: UNK
     Route: 065
  9. HYDROXYCHLOROQUINE/HYDROXYCHLOROQUINE PHOSPHATE/HYDROXYCHLOROQUINE SULFATE [Suspect]
     Active Substance: HYDROXYCHLOROQUINE
     Indication: ANKYLOSING SPONDYLITIS
     Dosage: 200 MG, QD
     Route: 065
  10. VALSARTAN. [Concomitant]
     Active Substance: VALSARTAN

REACTIONS (15)
  - Microangiopathic haemolytic anaemia [Unknown]
  - Arthralgia [Unknown]
  - Scleroedema [Unknown]
  - Weight decreased [Unknown]
  - Renal impairment [Unknown]
  - Leukopenia [Unknown]
  - Scleroderma renal crisis [Unknown]
  - Thrombocytopenia [Unknown]
  - Orthopnoea [Unknown]
  - Product use in unapproved indication [Unknown]
  - Therapy non-responder [Unknown]
  - Drug ineffective [Unknown]
  - Blood pressure increased [Unknown]
  - Dyspnoea [Unknown]
  - Raynaud^s phenomenon [Unknown]
